FAERS Safety Report 18758107 (Version 4)
Quarter: 2021Q1

REPORT INFORMATION
  Report Type: Report from Study
  Country: US (occurrence: US)
  Receive Date: 20210119
  Receipt Date: 20210210
  Transmission Date: 20210419
  Serious: No
  Sender: FDA-Public Use
  Company Number: NVSC2021US011327

PATIENT
  Sex: Female

DRUGS (1)
  1. ENTRESTO [Suspect]
     Active Substance: SACUBITRIL\VALSARTAN
     Indication: PRODUCT USED FOR UNKNOWN INDICATION
     Dosage: 1 DF, BID
     Route: 048
     Dates: start: 202008

REACTIONS (5)
  - Fluid retention [Unknown]
  - Weight loss poor [Unknown]
  - Hypotension [Recovering/Resolving]
  - Wrong technique in product usage process [Recovered/Resolved]
  - Weight increased [Unknown]
